FAERS Safety Report 15884763 (Version 2)
Quarter: 2019Q1

REPORT INFORMATION
  Report Type: Spontaneous
  Country: US (occurrence: US)
  Receive Date: 20190129
  Receipt Date: 20190305
  Transmission Date: 20190417
  Serious: No
  Sender: FDA-Public Use
  Company Number: US-009507513-1901USA009135

PATIENT
  Age: 43 Year
  Sex: Male
  Weight: 92.97 kg

DRUGS (2)
  1. INVANZ [Suspect]
     Active Substance: ERTAPENEM SODIUM
     Indication: ABDOMINAL INFECTION
     Dosage: 1G IV PUSH
     Route: 040
     Dates: start: 20190123, end: 20190219
  2. INVANZ [Suspect]
     Active Substance: ERTAPENEM SODIUM
     Indication: LARGE INTESTINE PERFORATION

REACTIONS (2)
  - No adverse event [Unknown]
  - Off label use [Unknown]

NARRATIVE: CASE EVENT DATE: 20190123
